FAERS Safety Report 22088937 (Version 1)
Quarter: 2023Q1

REPORT INFORMATION
  Report Type: Spontaneous
  Country: US (occurrence: None)
  Receive Date: 20230310
  Receipt Date: 20230310
  Transmission Date: 20230418
  Serious: No
  Sender: FDA-Public Use
  Company Number: None

PATIENT
  Sex: Male
  Weight: 79.2 kg

DRUGS (1)
  1. WELIREG [Suspect]
     Active Substance: BELZUTIFAN
     Indication: Phakomatosis
     Dosage: FREQUENCY : DAILY;?
     Route: 048
     Dates: start: 20210924, end: 20230310

REACTIONS (2)
  - Phakomatosis [None]
  - Disease progression [None]
